FAERS Safety Report 4304685-X (Version None)
Quarter: 2004Q1

REPORT INFORMATION
  Report Type: 
  Country: None (occurrence: None)
  Receive Date: 20040224
  Receipt Date: 20040216
  Transmission Date: 20041129
  Serious: Yes (Hospitalization)
  Sender: FDA-Public Use
  Company Number: 2004GB00401

PATIENT
  Age: 39 Year
  Sex: Female
  Weight: 63.5 kg

DRUGS (4)
  1. ZOLADEX [Suspect]
     Indication: DYSMENORRHOEA
     Dosage: 3.6 MG SQ
     Dates: start: 20031013
  2. CITALOPRAM [Concomitant]
  3. KAPAKE [Concomitant]
  4. NUPROFEN [Concomitant]

REACTIONS (5)
  - ALVEOLITIS [None]
  - CHEST PAIN [None]
  - DYSPNOEA [None]
  - PULMONARY OEDEMA [None]
  - WEIGHT INCREASED [None]
